FAERS Safety Report 8981367 (Version 1)
Quarter: 2012Q4

REPORT INFORMATION
  Report Type: 
  Country: US (occurrence: US)
  Receive Date: 20121221
  Receipt Date: 20121221
  Transmission Date: 20130627
  Serious: Yes (Other)
  Sender: FDA-Public Use
  Company Number: US-BAYER-2012-132444

PATIENT
  Age: 38 Year
  Sex: Female

DRUGS (4)
  1. ACETAMINOPHEN\CAFFEINE\PYRILAMINE MALEATE [Suspect]
     Indication: DYSMENORRHOEA
     Dosage: 1 DF, UNK
     Route: 048
  2. ACETAMINOPHEN\CAFFEINE\PYRILAMINE MALEATE [Suspect]
     Indication: DYSMENORRHOEA
     Dosage: 2 DF, UNK
  3. NEXIUM [Concomitant]
  4. ALAVERT [Concomitant]
     Dosage: UNK UNK, PRN

REACTIONS (6)
  - Feeling jittery [Not Recovered/Not Resolved]
  - Palpitations [Recovered/Resolved]
  - Dyspnoea [Recovered/Resolved]
  - Anxiety [Not Recovered/Not Resolved]
  - Dysmenorrhoea [Not Recovered/Not Resolved]
  - Dyspnoea [Recovered/Resolved]
